FAERS Safety Report 7010749-2 (Version None)
Quarter: 2010Q3

REPORT INFORMATION
  Report Type: 
  Country: None (occurrence: None)
  Receive Date: 20100923
  Receipt Date: 20100914
  Transmission Date: 20110219
  Serious: No
  Sender: FDA-Public Use
  Company Number: US-PFIZER INC-2010116637

PATIENT

DRUGS (1)
  1. XALATAN [Suspect]
     Dosage: UNK
     Dates: start: 20050101

REACTIONS (4)
  - BLISTER [None]
  - RASH [None]
  - SKIN DISORDER [None]
  - SKIN EXFOLIATION [None]
